FAERS Safety Report 11268964 (Version 1)
Quarter: 2015Q3

REPORT INFORMATION
  Report Type: Spontaneous
  Country: US (occurrence: None)
  Receive Date: 20150710
  Receipt Date: 20150710
  Transmission Date: 20151125
  Serious: Yes (Hospitalization)
  Sender: FDA-Public Use
  Company Number: KAD201507-002099

PATIENT
  Age: 60 Year
  Sex: Female

DRUGS (2)
  1. RIBAVIRIN (RIBAVIRIN) [Suspect]
     Active Substance: RIBAVIRIN
     Indication: HEPATITIS C
  2. VIEKIRA PAK [Suspect]
     Active Substance: DASABUVIR\OMBITASVIR\PARITAPREVIR\RITONAVIR
     Indication: HEPATITIS C
     Route: 048

REACTIONS (4)
  - Drug dose omission [None]
  - Confusional state [None]
  - Blood sodium decreased [None]
  - Unevaluable event [None]

NARRATIVE: CASE EVENT DATE: 20150621
